FAERS Safety Report 9968036 (Version 1)
Quarter: 2014Q1

REPORT INFORMATION
  Report Type: Report from Study
  Country: US (occurrence: US)
  Receive Date: 20140306
  Receipt Date: 20140306
  Transmission Date: 20141002
  Serious: No
  Sender: FDA-Public Use
  Company Number: US-ABBVIE-13P-163-1139904-00

PATIENT
  Age: 37 Year
  Sex: Female

DRUGS (7)
  1. HUMIRA [Suspect]
     Indication: CROHN^S DISEASE
     Dosage: DAY 1
     Dates: start: 201306, end: 201306
  2. HUMIRA [Suspect]
     Dosage: DAY 15
  3. HUMIRA [Suspect]
  4. UNKNOWN [Concomitant]
     Indication: GASTROOESOPHAGEAL REFLUX DISEASE
  5. BENTYL [Concomitant]
     Indication: COLITIS
  6. HYDROXYZINE [Concomitant]
     Indication: ANXIETY
     Dosage: AT BEDTIME
  7. SYNTHROID [Concomitant]
     Indication: THYROIDECTOMY

REACTIONS (3)
  - Device malfunction [Not Recovered/Not Resolved]
  - Incorrect dose administered [Not Recovered/Not Resolved]
  - Crohn^s disease [Not Recovered/Not Resolved]
